FAERS Safety Report 7433633-9 (Version None)
Quarter: 2011Q2

REPORT INFORMATION
  Report Type: 
  Country: None (occurrence: None)
  Receive Date: 20110422
  Receipt Date: 20110415
  Transmission Date: 20111010
  Serious: Yes (Hospitalization)
  Sender: FDA-Public Use
  Company Number: FR-MERCK-1104FRA00094

PATIENT
  Age: 33 Year
  Sex: Male

DRUGS (37)
  1. TEICOPLANIN [Suspect]
     Route: 042
     Dates: start: 20101207, end: 20101227
  2. CLAVULANATE POTASSIUM AND TICARCILLIN DISODIUM [Suspect]
     Route: 042
     Dates: start: 20101207, end: 20101227
  3. CYTARABINE [Suspect]
     Indication: ACUTE MYELOID LEUKAEMIA
     Route: 042
     Dates: start: 20101126, end: 20101202
  4. DEXAMETHASONE ACETATE [Suspect]
     Indication: LEUKOCYTOSIS
     Route: 048
     Dates: start: 20101126, end: 20101129
  5. LOPERAMIDE HYDROCHLORIDE [Concomitant]
     Route: 065
     Dates: start: 20101126, end: 20101207
  6. FIBRINOGEN, HUMAN [Concomitant]
     Indication: DISSEMINATED INTRAVASCULAR COAGULATION
     Route: 065
     Dates: start: 20101126, end: 20101130
  7. IDARUBICIN HYDROCHLORIDE [Suspect]
     Indication: ACUTE MYELOID LEUKAEMIA
     Route: 042
     Dates: start: 20101130, end: 20101130
  8. ONDANSETRON HYDROCHLORIDE [Concomitant]
     Route: 065
     Dates: start: 20101126, end: 20101206
  9. OXAZEPAM [Concomitant]
     Route: 065
  10. OMEPRAZOLE [Concomitant]
     Route: 065
     Dates: start: 20101126
  11. IDARUBICIN HYDROCHLORIDE [Suspect]
     Route: 042
     Dates: start: 20101128, end: 20101128
  12. FLOCTAFENINE [Concomitant]
     Route: 048
     Dates: start: 20101210, end: 20101215
  13. IPRATROPIUM BROMIDE [Concomitant]
     Route: 055
     Dates: start: 20101203, end: 20101223
  14. NICOTINE POLACRILEX [Suspect]
     Indication: NICOTINE DEPENDENCE
     Route: 055
     Dates: start: 20101127, end: 20101210
  15. GENTAMICIN [Suspect]
     Indication: INFECTION PROPHYLAXIS
     Route: 048
     Dates: start: 20101126, end: 20101216
  16. RASBURICASE [Concomitant]
     Route: 042
     Dates: start: 20101126, end: 20101127
  17. IDARUBICIN HYDROCHLORIDE [Suspect]
     Route: 042
     Dates: start: 20101126, end: 20101126
  18. NICOTINE [Concomitant]
     Route: 065
     Dates: start: 20101126, end: 20101207
  19. BUDESONIDE AND FORMOTEROL FUMARATE [Suspect]
     Route: 055
  20. TIOTROPIUM BROMIDE [Suspect]
     Route: 055
  21. VANCOMYCIN [Suspect]
     Indication: BODY TEMPERATURE INCREASED
     Route: 042
     Dates: start: 20101202, end: 20101207
  22. VENLAFAXINE HYDROCHLORIDE [Concomitant]
     Route: 065
  23. HYDROXYZINE HYDROCHLORIDE [Concomitant]
     Route: 065
     Dates: start: 20101207, end: 20101221
  24. EMEND [Suspect]
     Indication: PROPHYLAXIS OF NAUSEA AND VOMITING
     Route: 048
     Dates: start: 20101126, end: 20101206
  25. CIPROFLOXACIN HCL [Suspect]
     Indication: BODY TEMPERATURE INCREASED
     Route: 042
     Dates: start: 20101202, end: 20101207
  26. POSACONAZOLE [Suspect]
     Indication: ANTIFUNGAL PROPHYLAXIS
     Route: 042
     Dates: start: 20101202, end: 20101206
  27. AMISULPRIDE [Concomitant]
     Route: 065
  28. COLISTIN SULFATE [Suspect]
     Indication: INFECTION PROPHYLAXIS
     Route: 048
     Dates: start: 20101126, end: 20101216
  29. CILASTATIN SODIUM AND IMIPENEM [Suspect]
     Indication: BODY TEMPERATURE INCREASED
     Route: 042
     Dates: start: 20101202, end: 20101208
  30. MORPHINE [Concomitant]
     Route: 042
     Dates: start: 20101202, end: 20101216
  31. VORICONAZOLE [Suspect]
     Indication: BRONCHOPULMONARY ASPERGILLOSIS
     Route: 042
     Dates: start: 20101206, end: 20101218
  32. PIPERACILLIN SODIUM AND TAZOBACTAM SODIUM [Suspect]
     Indication: PYREXIA
     Route: 042
     Dates: start: 20101126, end: 20101201
  33. TRETINOIN [Suspect]
     Indication: ACUTE MYELOID LEUKAEMIA
     Route: 042
     Dates: start: 20101126, end: 20101215
  34. PLATELET CONCENTRATE [Concomitant]
     Route: 065
     Dates: start: 20101126, end: 20101127
  35. TERBUTALINE SULFATE [Concomitant]
     Route: 055
     Dates: start: 20101203, end: 20101223
  36. NICOTINE [Concomitant]
     Route: 065
  37. ACYCLOVIR [Suspect]
     Indication: MOUTH ULCERATION
     Route: 042
     Dates: start: 20101202, end: 20101210

REACTIONS (2)
  - PHARYNGITIS [None]
  - CONDITION AGGRAVATED [None]
